FAERS Safety Report 17510316 (Version 1)
Quarter: 2020Q1

REPORT INFORMATION
  Report Type: Spontaneous
  Country: US (occurrence: US)
  Receive Date: 20200306
  Receipt Date: 20200306
  Transmission Date: 20200409
  Serious: No
  Sender: FDA-Public Use
  Company Number: US-ELI_LILLY_AND_COMPANY-US202003002984

PATIENT
  Age: 30 Year
  Sex: Female

DRUGS (1)
  1. REYVOW [Suspect]
     Active Substance: LASMIDITAN
     Indication: MIGRAINE
     Dosage: UNK, UNKNOWN
     Route: 065

REACTIONS (3)
  - Withdrawal syndrome [Unknown]
  - Panic attack [Unknown]
  - Chest discomfort [Unknown]

NARRATIVE: CASE EVENT DATE: 202002
